FAERS Safety Report 17880248 (Version 2)
Quarter: 2020Q3

REPORT INFORMATION
  Report Type: Spontaneous
  Country: US (occurrence: US)
  Receive Date: 20200610
  Receipt Date: 20200708
  Transmission Date: 20201103
  Serious: No
  Sender: FDA-Public Use
  Company Number: US-UNITED THERAPEUTICS-UNT-2020-008437

PATIENT
  Age: 46 Year
  Sex: Male

DRUGS (3)
  1. REMODULIN [Suspect]
     Active Substance: TREPROSTINIL
     Dosage: 0.036 ?G/KG, CONTINUING
     Route: 058
     Dates: start: 2020
  2. REMODULIN [Suspect]
     Active Substance: TREPROSTINIL
     Indication: PULMONARY ARTERIAL HYPERTENSION
     Dosage: UNK, CONTINUING
     Route: 058
     Dates: start: 20200522
  3. REMODULIN [Suspect]
     Active Substance: TREPROSTINIL
     Dosage: 0.022 ?G/KG, CONTINUING
     Route: 058
     Dates: start: 2020

REACTIONS (8)
  - Vomiting [Recovered/Resolved]
  - Dyspnoea [Unknown]
  - Pain in jaw [Unknown]
  - Nausea [Unknown]
  - Polyuria [Unknown]
  - Dyspepsia [Unknown]
  - Dizziness exertional [Unknown]
  - Headache [Unknown]

NARRATIVE: CASE EVENT DATE: 2020
